FAERS Safety Report 6610161-1 (Version None)
Quarter: 2010Q1

REPORT INFORMATION
  Report Type: 
  Country: None (occurrence: None)
  Receive Date: 20100302
  Receipt Date: 20100217
  Transmission Date: 20100710
  Serious: Yes (Other)
  Sender: FDA-Public Use
  Company Number: US-PFIZER INC-2010024639

PATIENT
  Sex: Male

DRUGS (1)
  1. GEODON [Suspect]
     Dosage: 20 MG, UNK

REACTIONS (1)
  - WITHDRAWAL SYNDROME [None]
